FAERS Safety Report 7558033-2 (Version None)
Quarter: 2011Q2

REPORT INFORMATION
  Report Type: 
  Country: None (occurrence: None)
  Receive Date: 20110620
  Receipt Date: 20110608
  Transmission Date: 20111010
  Serious: Yes (Other)
  Sender: FDA-Public Use
  Company Number: PHHY2011GB50414

PATIENT
  Age: 70 Year
  Sex: Female

DRUGS (2)
  1. AMINOPHYLLIN TAB [Suspect]
     Indication: ASTHMA
     Dosage: UNK
  2. PREDNISOLONE [Suspect]
     Indication: ASTHMA
     Dosage: 10 AND 30 MG/DAY
     Route: 048

REACTIONS (9)
  - NAUSEA [None]
  - SKIN INFECTION [None]
  - NODULE [None]
  - LYMPHADENOPATHY [None]
  - SKIN INDURATION [None]
  - DERMAL SINUS [None]
  - ESCHERICHIA INFECTION [None]
  - OEDEMA [None]
  - INFLAMMATION [None]
